FAERS Safety Report 24556853 (Version 1)
Quarter: 2024Q4

REPORT INFORMATION
  Report Type: Spontaneous
  Country: US (occurrence: None)
  Receive Date: 20241028
  Receipt Date: 20241028
  Transmission Date: 20250115
  Serious: No
  Sender: Public
  Company Number: None

PATIENT
  Sex: Female
  Weight: 99.9 kg

DRUGS (19)
  1. REPATHA [Suspect]
     Active Substance: EVOLOCUMAB
     Indication: Cardiovascular disorder
     Dates: start: 20241003, end: 20241017
  2. OZEMPIC [Concomitant]
     Active Substance: SEMAGLUTIDE
  3. MOMONITRATE ER [Concomitant]
  4. CARVEDILOL [Concomitant]
     Active Substance: CARVEDILOL
  5. CHLORTHALIDONE [Concomitant]
     Active Substance: CHLORTHALIDONE
  6. RAMIPRIL [Concomitant]
     Active Substance: RAMIPRIL
  7. ROSUVASTATIN [Concomitant]
     Active Substance: ROSUVASTATIN
  8. PAROXETINE [Concomitant]
     Active Substance: PAROXETINE
  9. AZATHIOPRINE [Concomitant]
     Active Substance: AZATHIOPRINE
  10. MYRBETRIQ [Concomitant]
     Active Substance: MIRABEGRON
  11. ASPIRIN [Concomitant]
     Active Substance: ASPIRIN
  12. FOLIC ACID [Concomitant]
     Active Substance: FOLIC ACID
  13. MINERALS\VITAMINS [Concomitant]
     Active Substance: MINERALS\VITAMINS
  14. FISH OIL [Concomitant]
     Active Substance: FISH OIL
  15. COENZYME Q10 [Concomitant]
     Active Substance: DIETARY SUPPLEMENT\UBIDECARENONE
  16. VITAMIN D [Concomitant]
     Active Substance: VITAMIN D NOS
  17. VITAMIN C [Concomitant]
     Active Substance: ASCORBIC ACID
  18. LUTEIN/ZEAXANTHIN [Concomitant]
  19. MAGNESIUM GLYCINATE [Concomitant]
     Active Substance: MAGNESIUM GLYCINATE

REACTIONS (6)
  - Visual impairment [None]
  - Neovascular age-related macular degeneration [None]
  - Photopsia [None]
  - Vitreous floaters [None]
  - Visual field defect [None]
  - Macular hole [None]
